FAERS Safety Report 7442271-3 (Version None)
Quarter: 2011Q2

REPORT INFORMATION
  Report Type: 
  Country: None (occurrence: None)
  Receive Date: 20110428
  Receipt Date: 20100317
  Transmission Date: 20111010
  Serious: No
  Sender: FDA-Public Use
  Company Number: US-ASTRAZENECA-2010SE11717

PATIENT
  Age: 44 Year
  Sex: Female
  Weight: 77.1 kg

DRUGS (5)
  1. AMBIEN [Concomitant]
  2. XANAX [Concomitant]
     Dosage: AS NEEDED
  3. RYTHMOL [Concomitant]
  4. ZOMIG [Suspect]
     Indication: MIGRAINE
     Dosage: AS NEEDED
     Route: 048
     Dates: start: 20080101
  5. ASPIRIN [Concomitant]
     Dosage: DAILY

REACTIONS (7)
  - HEADACHE [None]
  - MIGRAINE [None]
  - COUGH [None]
  - MUSCULAR WEAKNESS [None]
  - FATIGUE [None]
  - THROAT TIGHTNESS [None]
  - MYALGIA [None]
